FAERS Safety Report 7514308-4 (Version None)
Quarter: 2011Q2

REPORT INFORMATION
  Report Type: 
  Country: None (occurrence: None)
  Receive Date: 20110601
  Receipt Date: 20080805
  Transmission Date: 20111010
  Serious: No
  Sender: FDA-Public Use
  Company Number: US-BIOGENIDEC-2008BI020361

PATIENT
  Sex: Male

DRUGS (2)
  1. TYSABRI [Suspect]
     Route: 042
     Dates: start: 20070307
  2. TYSABRI [Suspect]
     Indication: MULTIPLE SCLEROSIS
     Route: 042
     Dates: start: 20050118

REACTIONS (8)
  - VISUAL IMPAIRMENT [None]
  - MOBILITY DECREASED [None]
  - HYPERSOMNIA [None]
  - URINARY TRACT INFECTION [None]
  - DYSARTHRIA [None]
  - PYREXIA [None]
  - MULTIPLE SCLEROSIS [None]
  - MUSCLE SPASMS [None]
